FAERS Safety Report 7919378-7 (Version None)
Quarter: 2011Q4

REPORT INFORMATION
  Report Type: 
  Country: None (occurrence: None)
  Receive Date: 20111116
  Receipt Date: 20111116
  Transmission Date: 20120403
  Serious: Yes (Other)
  Sender: FDA-Public Use
  Company Number: None

PATIENT
  Sex: Male

DRUGS (1)
  1. METHYLIN ER [Suspect]
     Indication: ATTENTION DEFICIT/HYPERACTIVITY DISORDER
     Dosage: 10 MG PO
     Route: 048
     Dates: start: 20110526, end: 20110606

REACTIONS (2)
  - DISTURBANCE IN ATTENTION [None]
  - PRODUCT SUBSTITUTION ISSUE [None]
